FAERS Safety Report 5614317-6 (Version None)
Quarter: 2008Q1

REPORT INFORMATION
  Report Type: 
  Country: None (occurrence: None)
  Receive Date: 20080130
  Receipt Date: 20070420
  Transmission Date: 20080703
  Serious: Yes (Life-Threatening)
  Sender: FDA-Public Use
  Company Number: NL01PV07.02205

PATIENT
  Sex: Female

DRUGS (2)
  1. PAROXETINE [Suspect]
  2. CITALOPRAM HYDROBROMIDE [Concomitant]

REACTIONS (7)
  - AGGRESSION [None]
  - AGORAPHOBIA [None]
  - COMPLETED SUICIDE [None]
  - DRUG WITHDRAWAL SYNDROME [None]
  - INTENTIONAL SELF-INJURY [None]
  - OVERDOSE [None]
  - PANIC ATTACK [None]
